FAERS Safety Report 20995168 (Version 1)
Quarter: 2022Q2

REPORT INFORMATION
  Report Type: Spontaneous
  Country: US (occurrence: US)
  Receive Date: 20220622
  Receipt Date: 20220622
  Transmission Date: 20220721
  Serious: Yes (Other)
  Sender: FDA-Public Use
  Company Number: US-SA-SAC20220620001049

PATIENT
  Age: 51 Year
  Sex: Female

DRUGS (1)
  1. ZANTAC [Suspect]
     Active Substance: RANITIDINE HYDROCHLORIDE
     Indication: Gastrooesophageal reflux disease
     Dosage: UNK, FREQUENCY OTHER
     Dates: start: 200901, end: 201101

REACTIONS (2)
  - Breast cancer stage I [Recovering/Resolving]
  - Vulval cancer [Recovering/Resolving]

NARRATIVE: CASE EVENT DATE: 20171101
